FAERS Safety Report 10751535 (Version 1)
Quarter: 2015Q1

REPORT INFORMATION
  Report Type: Spontaneous
  Country: IT (occurrence: None)
  Receive Date: 20150128
  Receipt Date: 20150128
  Transmission Date: 20150721
  Serious: Yes (Other)
  Sender: FDA-Public Use
  Company Number: 2015JUB00024

PATIENT
  Age: 14 Year
  Sex: Male

DRUGS (4)
  1. RISPERIDONE (RISPERIDONE) [Suspect]
     Active Substance: RISPERIDONE
     Indication: CONDUCT DISORDER
  2. RISPERIDONE (RISPERIDONE) [Suspect]
     Active Substance: RISPERIDONE
     Indication: ANXIETY DISORDER
  3. RISPERIDONE (RISPERIDONE) [Suspect]
     Active Substance: RISPERIDONE
     Indication: AFFECTIVE DISORDER
  4. RISPERIDONE (RISPERIDONE) [Suspect]
     Active Substance: RISPERIDONE
     Indication: OPPOSITIONAL DEFIANT DISORDER

REACTIONS (1)
  - Blood creatine phosphokinase increased [None]
